FAERS Safety Report 14945762 (Version 2)
Quarter: 2018Q2

REPORT INFORMATION
  Report Type: Spontaneous
  Country: JP (occurrence: JP)
  Receive Date: 20180529
  Receipt Date: 20180608
  Transmission Date: 20180711
  Serious: Yes (Hospitalization)
  Sender: FDA-Public Use
  Company Number: PHHY2018JP007175

PATIENT
  Age: 54 Year
  Sex: Female
  Weight: 38 kg

DRUGS (3)
  1. CDDP [Suspect]
     Active Substance: CISPLATIN
     Indication: SQUAMOUS CELL CARCINOMA
     Dosage: 6 MG, UNK
     Route: 065
     Dates: start: 201602
  2. DOCETAXEL. [Suspect]
     Active Substance: DOCETAXEL
     Indication: SQUAMOUS CELL CARCINOMA
     Dosage: 60 MG, QD
     Route: 065
     Dates: start: 201602
  3. 5-FU [Suspect]
     Active Substance: FLUOROURACIL
     Indication: SQUAMOUS CELL CARCINOMA
     Dosage: 350 MG, QD
     Route: 065
     Dates: start: 201602

REACTIONS (5)
  - Neutropenia [Recovering/Resolving]
  - Flank pain [Recovering/Resolving]
  - Acute focal bacterial nephritis [Recovering/Resolving]
  - Hydronephrosis [Recovering/Resolving]
  - Pyrexia [Recovering/Resolving]
